FAERS Safety Report 24953434 (Version 2)
Quarter: 2025Q1

REPORT INFORMATION
  Report Type: Report from Study
  Country: US (occurrence: US)
  Receive Date: 20250211
  Receipt Date: 20250307
  Transmission Date: 20250408
  Serious: Yes (Hospitalization)
  Sender: RECORDATI
  Company Number: US-ORPHANEU-2025000724

PATIENT
  Age: 75 Year
  Sex: Female
  Weight: 102.04 kg

DRUGS (17)
  1. ISTURISA [Suspect]
     Active Substance: OSILODROSTAT PHOSPHATE
     Indication: Pituitary-dependent Cushing^s syndrome
     Dosage: 3 MG (TABLET), BID
     Route: 048
     Dates: end: 202412
  2. ISTURISA [Suspect]
     Active Substance: OSILODROSTAT PHOSPHATE
     Dosage: 3 MG (TABLET), BID
     Route: 048
     Dates: start: 202412
  3. CARVEDILOL [Concomitant]
     Active Substance: CARVEDILOL
     Indication: Product used for unknown indication
     Dosage: 12.5 MG (TABLET), BID
     Route: 048
     Dates: start: 20210119
  4. CRESTOR [Concomitant]
     Active Substance: ROSUVASTATIN CALCIUM
     Indication: Product used for unknown indication
     Dosage: 20 MG (TABLET), QD
     Route: 048
     Dates: start: 20210101
  5. DULOXETINE HYDROCHLORIDE [Concomitant]
     Active Substance: DULOXETINE HYDROCHLORIDE
     Indication: Product used for unknown indication
     Dosage: 60 MG (CAPSULE DELAYED), QD
     Route: 048
     Dates: start: 20210101
  6. GABAPENTIN [Concomitant]
     Active Substance: GABAPENTIN
     Indication: Product used for unknown indication
     Dosage: 100 MG (2), BID, CAPSULE
     Route: 048
     Dates: start: 20210101
  7. GLUCOSAMINE [Concomitant]
     Active Substance: GLUCOSAMINE
     Indication: Product used for unknown indication
     Dosage: 2000 MG (500 MG CAPSULE), BID
     Route: 048
     Dates: start: 20210101
  8. IRON [Concomitant]
     Active Substance: IRON
     Indication: Product used for unknown indication
     Dosage: 325 (65 FE TABLET), QD
     Route: 048
     Dates: start: 20210101
  9. KETOCONAZOLE [Concomitant]
     Active Substance: KETOCONAZOLE
     Indication: Product used for unknown indication
     Dosage: 600 MG (200 MG TABLET), BID
     Route: 048
     Dates: start: 20210101
  10. LEVOTHYROXINE SODIUM [Concomitant]
     Active Substance: LEVOTHYROXINE SODIUM
     Indication: Product used for unknown indication
     Dosage: 125 MICROGRAM (TABLET), QD
     Route: 048
     Dates: start: 20210101
  11. MIFEPRISTONE [Concomitant]
     Active Substance: MIFEPRISTONE
     Indication: Product used for unknown indication
     Dosage: 300 MG (TABLET), QD
     Route: 048
     Dates: start: 20210101
  12. NOVOLIN R [Concomitant]
     Active Substance: INSULIN HUMAN
     Indication: Product used for unknown indication
     Dates: start: 20210101
  13. SPIRONOLACTONE [Concomitant]
     Active Substance: SPIRONOLACTONE
     Indication: Product used for unknown indication
     Dosage: 50 MG (TABLET), BID
     Route: 048
     Dates: start: 20210101
  14. TORSEMIDE [Concomitant]
     Active Substance: TORSEMIDE
     Indication: Product used for unknown indication
     Dosage: 20 MG (TABLET), BID
     Route: 048
     Dates: start: 20210101
  15. TRICOR [Concomitant]
     Active Substance: FENOFIBRATE
     Indication: Product used for unknown indication
     Dosage: 145 MG (ORAL TABLET 145 MG), QD
     Route: 048
     Dates: start: 20210101
  16. TRULICITY [Concomitant]
     Active Substance: DULAGLUTIDE
     Indication: Product used for unknown indication
     Dosage: 1.5MG/0.5ML (SOLUTION), QD
     Route: 058
     Dates: start: 20210106
  17. VITAMIN B12 [Concomitant]
     Active Substance: CYANOCOBALAMIN
     Indication: Product use in unapproved indication
     Dosage: 100 MICROGRAM (TABLET), QD
     Route: 048
     Dates: start: 20210101

REACTIONS (2)
  - Pneumonia [Recovered/Resolved]
  - Pneumonia [Unknown]

NARRATIVE: CASE EVENT DATE: 20241201
